FAERS Safety Report 21513608 (Version 1)
Quarter: 2022Q4

REPORT INFORMATION
  Report Type: Spontaneous
  Country: US (occurrence: US)
  Receive Date: 20221027
  Receipt Date: 20221027
  Transmission Date: 20230113
  Serious: Yes (Life-Threatening)
  Sender: FDA-Public Use
  Company Number: US-Melinta Therapeutics, LLC-US-MLNT-22-00183

PATIENT
  Age: 72 Year
  Sex: Female
  Weight: 64.4 kg

DRUGS (2)
  1. KIMYRSA [Suspect]
     Active Substance: ORITAVANCIN DIPHOSPHATE
     Indication: Cellulitis
     Route: 041
     Dates: start: 20221005, end: 20221005
  2. DALVANCE [Concomitant]
     Active Substance: DALBAVANCIN
     Indication: Cellulitis
     Dosage: 4 TO 6 DOSES FOR THE PAST 1.5 YEARS.

REACTIONS (4)
  - Hypertensive crisis [Recovered/Resolved]
  - Muscle spasms [Recovered/Resolved]
  - Tremor [Unknown]
  - Burning sensation [Unknown]

NARRATIVE: CASE EVENT DATE: 20221005
